FAERS Safety Report 9991037 (Version 1)
Quarter: 2014Q1

REPORT INFORMATION
  Report Type: Report from Study
  Country: US (occurrence: US)
  Receive Date: 20140310
  Receipt Date: 20140310
  Transmission Date: 20141002
  Serious: No
  Sender: FDA-Public Use
  Company Number: US-ABBVIE-13P-163-1132908-00

PATIENT
  Age: 58 Year
  Sex: Female

DRUGS (16)
  1. HUMIRA [Suspect]
     Indication: RHEUMATOID ARTHRITIS
     Dates: start: 20130602
  2. VICODIN [Concomitant]
     Indication: PAIN
     Dosage: 7.5/750MG; AS NEEDED
  3. ASPIRIN [Concomitant]
     Indication: CARDIAC DISORDER
  4. FLEXERIL [Concomitant]
     Indication: MYALGIA
     Dosage: AS NEEDED
  5. ISOSORBIDE [Concomitant]
     Indication: CARDIAC DISORDER
  6. LISINOPRIL [Concomitant]
     Indication: CARDIAC DISORDER
  7. LYRICA [Concomitant]
     Indication: FIBROMYALGIA
  8. MECLIZINE [Concomitant]
     Indication: DIZZINESS
     Dosage: AS NEEDED
  9. METOPROLOL [Concomitant]
     Indication: CARDIAC DISORDER
  10. NEXIUM [Concomitant]
     Indication: GASTRIC DISORDER
  11. NITROSTAT [Concomitant]
     Indication: CHEST PAIN
  12. PREDNISONE [Concomitant]
     Indication: PRODUCT USED FOR UNKNOWN INDICATION
  13. ZOVIRAX [Concomitant]
     Indication: HERPES VIRUS INFECTION
  14. FLONASE [Concomitant]
     Indication: SINUS DISORDER
     Dosage: TO EACH NOSTRIL
  15. FLONASE [Concomitant]
     Indication: HEADACHE
  16. ACYCLOVIR [Concomitant]
     Indication: HERPES VIRUS INFECTION

REACTIONS (3)
  - Contusion [Recovering/Resolving]
  - Fall [Unknown]
  - Pain [Unknown]
